FAERS Safety Report 21246177 (Version 1)
Quarter: 2022Q3

REPORT INFORMATION
  Report Type: Spontaneous
  Country: FR (occurrence: FR)
  Receive Date: 20220824
  Receipt Date: 20220824
  Transmission Date: 20221027
  Serious: Yes (Hospitalization)
  Sender: FDA-Public Use
  Company Number: None

PATIENT
  Age: 74 Year
  Sex: Male
  Weight: 72.1 kg

DRUGS (8)
  1. VERAPAMIL HYDROCHLORIDE [Suspect]
     Active Substance: VERAPAMIL HYDROCHLORIDE
     Indication: Myocardial ischaemia
     Dosage: CHLORHYDRATE DE VERAPAMIL, UNIT DOSE: 240 MG, FREQUENCY TIME : 1 DAY
  2. PREDNISOLONE ACETATE [Suspect]
     Active Substance: PREDNISOLONE ACETATE
     Indication: Bicytopenia
     Dosage: UNIT DOSE: 40 MG, FREQUENCY TIME : 1 DAY, THERAPY END DATE : NASK
     Dates: start: 20220725
  3. ATORVASTATIN [Suspect]
     Active Substance: ATORVASTATIN
     Indication: Myocardial ischaemia
     Dosage: UNIT DOSE: 10 MG, FREQUENCY TIME : 1 DAY
  4. METHYLPREDNISOLONE [Suspect]
     Active Substance: METHYLPREDNISOLONE
     Indication: Cerebral haematoma
     Dosage: UNIT DOSE: 1 MG/KG, FREQUENCY TIME : 1 DAY, DURATION 20 DAYS
     Dates: start: 20220701, end: 20220721
  5. METHYLPREDNISOLONE [Suspect]
     Active Substance: METHYLPREDNISOLONE
     Dosage: UNIT DOSE: 1 MG/KG, FREQUENCY TIME : 1 DAY, DURATION : 12 DAYS
     Dates: start: 20220617, end: 20220629
  6. SERETIDE [Suspect]
     Active Substance: FLUTICASONE PROPIONATE\SALMETEROL XINAFOATE
     Indication: Myocardial ischaemia
     Dosage: STRENGTH: 250/50 MICROGRAMS/DOSE, INHALATION POWDER IN SINGLE-DOSE CONTAINER, UNIT DOSE: 1 DF, FREQU
  7. KARDEGIC [Suspect]
     Active Substance: ASPIRIN DL-LYSINE
     Indication: Myocardial ischaemia
     Dosage: KARDEGIC 75 MG, POWDER FOR ORAL SOLUTION IN SACHET-DOSE, UNIT DOSE: 1 DF, FREQUENCY TIME: 1 DAY
  8. PERINDOPRIL [Suspect]
     Active Substance: PERINDOPRIL
     Indication: Myocardial ischaemia
     Dosage: UNIT DOSE: 8 MG, FREQUENCY TIME : 1 DAY

REACTIONS (1)
  - Thrombotic microangiopathy [Recovering/Resolving]

NARRATIVE: CASE EVENT DATE: 20220630
